FAERS Safety Report 15293579 (Version 1)
Quarter: 2018Q3

REPORT INFORMATION
  Report Type: Spontaneous
  Country: US (occurrence: US)
  Receive Date: 20180820
  Receipt Date: 20180820
  Transmission Date: 20181010
  Serious: No
  Sender: FDA-Public Use
  Company Number: US-TEVA-797912ACC

PATIENT
  Age: 76 Year
  Sex: Male

DRUGS (1)
  1. VENLAFAXINE HYDROCHLORIDE EXTENDED?RELEASE [Suspect]
     Active Substance: VENLAFAXINE HYDROCHLORIDE
     Indication: BIPOLAR DISORDER

REACTIONS (2)
  - Drug prescribing error [Unknown]
  - Therapeutic response unexpected [Unknown]
